FAERS Safety Report 8968162 (Version 1)
Quarter: 2012Q4

REPORT INFORMATION
  Report Type: Spontaneous
  Country: US (occurrence: None)
  Receive Date: 20121214
  Receipt Date: 20121214
  Transmission Date: 20130627
  Serious: Yes (Other)
  Sender: FDA-Public Use
  Company Number: None

PATIENT
  Age: 45 Year
  Sex: Female
  Weight: 86.18 kg

DRUGS (1)
  1. SUBOXONE [Suspect]
     Indication: CHRONIC PAIN
     Dosage: 1 film 3x dsy sl
     Route: 060
     Dates: start: 20121128, end: 20121213

REACTIONS (1)
  - Oral candidiasis [None]
